FAERS Safety Report 8228891 (Version 2)
Quarter: 2012Q4

REPORT INFORMATION
  Report Type: 
  Country: FR (occurrence: FR)
  Receive Date: 20111104
  Receipt Date: 20120911
  Transmission Date: 20130627
  Serious: Yes (Hospitalization)
  Sender: FDA-Public Use
  Company Number: FR-SANOFI-AVENTIS-2011SA070679

PATIENT
  Age: 68 Year
  Sex: Female

DRUGS (10)
  1. RIFATER [Suspect]
     Indication: GANGLIONIC TUBERCULOSIS
     Route: 048
     Dates: start: 20101120, end: 20110102
  2. MYAMBUTOL [Suspect]
     Indication: GANGLIONIC TUBERCULOSIS
     Route: 048
     Dates: start: 20101120, end: 20110102
  3. MYAMBUTOL [Suspect]
     Indication: GANGLIONIC TUBERCULOSIS
     Route: 048
     Dates: start: 20110102, end: 20110114
  4. COLCHIMAX [Concomitant]
     Indication: GOUT
     Route: 048
     Dates: start: 2010, end: 20110102
  5. ALLOPURINOL [Concomitant]
     Indication: GOUT
     Route: 048
     Dates: start: 2010, end: 20110102
  6. EFFEXOR [Concomitant]
     Indication: DRUG USE FOR UNKNOWN INDICATION
     Route: 048
  7. MOPRAL [Concomitant]
     Indication: DRUG USE FOR UNKNOWN INDICATION
     Route: 048
  8. AMILORIDE HYDROCHLORIDE/HYDROCHLOROTHIAZIDE [Concomitant]
     Indication: DRUG USE FOR UNKNOWN INDICATION
     Route: 048
     Dates: end: 20110102
  9. ROCEPHINE [Concomitant]
     Indication: CHOLECYSTECTOMY
     Dates: start: 20101222, end: 20110102
  10. FLAGYL [Concomitant]
     Indication: CHOLECYSTECTOMY
     Dates: start: 20101222, end: 20110102

REACTIONS (7)
  - Drug reaction with eosinophilia and systemic symptoms [Recovered/Resolved]
  - Pruritus [Recovered/Resolved]
  - Lipase increased [Recovered/Resolved]
  - Eosinophilia [Recovered/Resolved]
  - Skin lesion [Recovered/Resolved]
  - Face oedema [Recovered/Resolved]
  - Renal failure [Recovered/Resolved]
